FAERS Safety Report 11650341 (Version 2)
Quarter: 2016Q1

REPORT INFORMATION
  Report Type: Spontaneous
  Country: US (occurrence: US)
  Receive Date: 20151021
  Receipt Date: 20160218
  Transmission Date: 20160525
  Serious: Yes (Hospitalization, Other)
  Sender: FDA-Public Use
  Company Number: US-GLAXOSMITHKLINE-US2015GSK149780

PATIENT
  Age: 69 Year
  Sex: Female

DRUGS (2)
  1. LOVAZA [Suspect]
     Active Substance: OMEGA-3-ACID ETHYL ESTERS
     Indication: BLOOD TRIGLYCERIDES INCREASED
     Dosage: UNK, U
     Route: 065
  2. LOVAZA [Suspect]
     Active Substance: OMEGA-3-ACID ETHYL ESTERS
     Dosage: UNK
     Dates: start: 201008

REACTIONS (5)
  - Stent placement [Unknown]
  - Dyspnoea [Unknown]
  - Malaise [Unknown]
  - Coronary artery disease [Unknown]
  - Vascular graft [Unknown]

NARRATIVE: CASE EVENT DATE: 20150724
